FAERS Safety Report 22195831 (Version 2)
Quarter: 2023Q2

REPORT INFORMATION
  Report Type: Spontaneous
  Country: US (occurrence: US)
  Receive Date: 20230411
  Receipt Date: 20230516
  Transmission Date: 20230721
  Serious: No
  Sender: FDA-Public Use
  Company Number: US-ASTPRD-AER-2022-020240

PATIENT
  Sex: Male

DRUGS (2)
  1. PROGRAF [Suspect]
     Active Substance: TACROLIMUS
     Indication: Lung transplant
     Route: 048
     Dates: start: 19971019
  2. PROGRAF [Suspect]
     Active Substance: TACROLIMUS
     Indication: Lung neoplasm malignant

REACTIONS (3)
  - Inappropriate schedule of product administration [Unknown]
  - Suspected product tampering [Unknown]
  - Product container seal issue [Unknown]
